APPROVED DRUG PRODUCT: SEROQUEL
Active Ingredient: QUETIAPINE FUMARATE
Strength: EQ 150MG BASE **Federal Register determination that product was not discontinued or withdrawn for safety or effectiveness reasons**
Dosage Form/Route: TABLET;ORAL
Application: N020639 | Product #004
Applicant: CHEPLAPHARM ARZNEIMITTEL GMBH
Approved: Dec 20, 1998 | RLD: Yes | RS: No | Type: DISCN